FAERS Safety Report 10877416 (Version 2)
Quarter: 2015Q1

REPORT INFORMATION
  Report Type: Report from Study
  Country: IN (occurrence: IN)
  Receive Date: 20150302
  Receipt Date: 20150305
  Transmission Date: 20150721
  Serious: Yes (Death)
  Sender: FDA-Public Use
  Company Number: IN-ASTELLAS-2015US006533

PATIENT
  Age: 57 Year
  Sex: Male

DRUGS (2)
  1. FEROXO [Concomitant]
     Indication: PRODUCT USED FOR UNKNOWN INDICATION
     Dosage: UNK, UNKNOWN FREQ.
     Route: 065
  2. ERLOTINIB [Suspect]
     Active Substance: ERLOTINIB
     Indication: PANCREATIC CARCINOMA METASTATIC
     Route: 048
     Dates: start: 201407, end: 201409

REACTIONS (2)
  - Mental disorder [Fatal]
  - Decreased appetite [Fatal]

NARRATIVE: CASE EVENT DATE: 20141004
